FAERS Safety Report 4552867-4 (Version None)
Quarter: 2005Q1

REPORT INFORMATION
  Report Type: 
  Country: None (occurrence: None)
  Receive Date: 20050114
  Receipt Date: 20041005
  Transmission Date: 20050727
  Serious: Yes (Hospitalization)
  Sender: FDA-Public Use
  Company Number: FR-MERCK-0410FRA00027

PATIENT
  Age: 77 Year
  Sex: Male

DRUGS (2)
  1. VIOXX [Suspect]
     Route: 048
     Dates: end: 20040707
  2. FLUINDIONE [Suspect]
     Indication: AORTIC VALVE REPLACEMENT
     Route: 048
     Dates: start: 20030101

REACTIONS (10)
  - ALANINE AMINOTRANSFERASE INCREASED [None]
  - ASPARTATE AMINOTRANSFERASE INCREASED [None]
  - ATRIAL FIBRILLATION [None]
  - CARDIAC FAILURE [None]
  - CHEST PAIN [None]
  - DRUG INTERACTION [None]
  - DYSPNOEA [None]
  - HEPATIC PAIN [None]
  - INTERNATIONAL NORMALISED RATIO INCREASED [None]
  - OEDEMA PERIPHERAL [None]
